FAERS Safety Report 6575682-9 (Version None)
Quarter: 2010Q1

REPORT INFORMATION
  Report Type: 
  Country: None (occurrence: None)
  Receive Date: 20100208
  Receipt Date: 20100208
  Transmission Date: 20100710
  Serious: Yes (Life-Threatening, Hospitalization, Disabling, Other)
  Sender: FDA-Public Use
  Company Number: None

PATIENT
  Sex: Male
  Weight: 95.5 kg

DRUGS (2)
  1. NICOTROL [Suspect]
     Indication: ANOSMIA
     Dosage: TWO NASAL SPRAYS ONCE DAY INTRANASAL 7-8 DAYS, PRN
     Dates: start: 20091216, end: 20091229
  2. NICOTROL [Suspect]
     Indication: NASAL CONGESTION
     Dosage: TWO NASAL SPRAYS ONCE DAY INTRANASAL 7-8 DAYS, PRN
     Dates: start: 20091216, end: 20091229

REACTIONS (2)
  - CEREBROVASCULAR ARTERIOVENOUS MALFORMATION [None]
  - HAEMORRHAGIC STROKE [None]
